FAERS Safety Report 5367380-4 (Version None)
Quarter: 2007Q2

REPORT INFORMATION
  Report Type: 
  Country: None (occurrence: None)
  Receive Date: 20070622
  Receipt Date: 20060623
  Transmission Date: 20071010
  Serious: No
  Sender: FDA-Public Use
  Company Number: US-ASTRAZENECA-2006UW13372

PATIENT
  Age: 3 Year
  Sex: Female

DRUGS (1)
  1. PULMICORT RESPULES [Suspect]
     Indication: BRONCHIAL HYPERREACTIVITY
     Route: 055
     Dates: start: 20060503

REACTIONS (1)
  - ALOPECIA [None]
